FAERS Safety Report 7572127-7 (Version None)
Quarter: 2011Q2

REPORT INFORMATION
  Report Type: 
  Country: None (occurrence: None)
  Receive Date: 20110624
  Receipt Date: 20110620
  Transmission Date: 20111010
  Serious: Yes (Hospitalization)
  Sender: FDA-Public Use
  Company Number: US-ABBOTT-11P-163-0734180-00

PATIENT
  Sex: Female
  Weight: 97.156 kg

DRUGS (7)
  1. ASACOL [Concomitant]
     Indication: CROHN'S DISEASE
  2. VITAMIN B-12 [Concomitant]
     Indication: VITAMIN B12 DECREASED
     Route: 045
  3. MIRAPEX [Concomitant]
     Indication: RESTLESS LEGS SYNDROME
  4. WELCHOL [Concomitant]
     Indication: BLOOD CHOLESTEROL INCREASED
  5. HUMIRA [Suspect]
     Indication: CROHN'S DISEASE
     Dates: start: 20100101
  6. TRIAMTERENE [Concomitant]
     Indication: HYPERTENSION
  7. VITAMIN D [Concomitant]
     Indication: VITAMIN D DECREASED

REACTIONS (2)
  - WEIGHT INCREASED [None]
  - ARTHROPATHY [None]
